FAERS Safety Report 17141216 (Version 5)
Quarter: 2020Q2

REPORT INFORMATION
  Report Type: Spontaneous
  Country: US (occurrence: US)
  Receive Date: 20191211
  Receipt Date: 20200505
  Transmission Date: 20200713
  Serious: Yes (Other)
  Sender: FDA-Public Use
  Company Number: US-GILEAD-2019-0441963

PATIENT
  Age: 39 Year
  Sex: Male
  Weight: 81.18 kg

DRUGS (81)
  1. STRIBILD [Suspect]
     Active Substance: COBICISTAT\ELVITEGRAVIR\EMTRICITABINE\TENOFOVIR DISOPROXIL FUMARATE
     Indication: HEPATITIS B
     Dosage: UNK
     Route: 065
     Dates: start: 2009
  2. FUROSEMIDE. [Concomitant]
     Active Substance: FUROSEMIDE
  3. TRAZODONE [Concomitant]
     Active Substance: TRAZODONE HYDROCHLORIDE
  4. VITAMIN C [ASCORBIC ACID;BIOFLAVONOIDS] [Concomitant]
  5. AMITIZA [Concomitant]
     Active Substance: LUBIPROSTONE
  6. PREDNISONE. [Concomitant]
     Active Substance: PREDNISONE
  7. ADDERALL [Concomitant]
     Active Substance: AMPHETAMINE ASPARTATE\AMPHETAMINE SULFATE\DEXTROAMPHETAMINE SACCHARATE\DEXTROAMPHETAMINE SULFATE
  8. ACYCLOVIR ALPHARMA [ACICLOVIR] [Concomitant]
  9. CALCIUM CARBONATE. [Concomitant]
     Active Substance: CALCIUM CARBONATE
  10. KLOR-CON [Concomitant]
     Active Substance: POTASSIUM CHLORIDE
  11. MORPHINE SULFATE. [Concomitant]
     Active Substance: MORPHINE SULFATE
  12. FLUTICASONE. [Concomitant]
     Active Substance: FLUTICASONE
  13. METRONIDAZOLE. [Concomitant]
     Active Substance: METRONIDAZOLE
  14. MAXALT-MLT [Concomitant]
     Active Substance: RIZATRIPTAN BENZOATE
  15. BIKTARVY [Concomitant]
     Active Substance: BICTEGRAVIR SODIUM\EMTRICITABINE\TENOFOVIR ALAFENAMIDE FUMARATE
  16. EPINASTINE HYDROCHLORIDE. [Concomitant]
     Active Substance: EPINASTINE HYDROCHLORIDE
  17. HYDROCORTISONE. [Concomitant]
     Active Substance: HYDROCORTISONE
  18. CLOTRIMAZOLE AND BETAMETHASONE [Concomitant]
     Active Substance: BETAMETHASONE\CLOTRIMAZOLE
  19. MAGNESIUM OXIDE. [Concomitant]
     Active Substance: MAGNESIUM OXIDE
  20. B-COMPLEX SQUIBB [Concomitant]
  21. ELESTAT [Concomitant]
     Active Substance: EPINASTINE HYDROCHLORIDE
  22. DOXAZOSIN [Concomitant]
     Active Substance: DOXAZOSIN MESYLATE
  23. STRIBILD [Suspect]
     Active Substance: COBICISTAT\ELVITEGRAVIR\EMTRICITABINE\TENOFOVIR DISOPROXIL FUMARATE
     Indication: HIV INFECTION
     Dosage: UNK
     Route: 048
     Dates: start: 2009, end: 2019
  24. GABAPENTIN. [Concomitant]
     Active Substance: GABAPENTIN
  25. POLYETHYLENE [Concomitant]
     Active Substance: HIGH DENSITY POLYETHYLENE
  26. PREVIDENT 5000 ENAMEL PROTECT [Concomitant]
     Active Substance: POTASSIUM NITRATE\SODIUM FLUORIDE
  27. LANSOPRAZOLE. [Concomitant]
     Active Substance: LANSOPRAZOLE
  28. PROCTOZONE HC [Concomitant]
     Active Substance: HYDROCORTISONE
  29. EGRIFTA [Concomitant]
     Active Substance: TESAMORELIN ACETATE
  30. FISH OIL [Concomitant]
     Active Substance: FISH OIL
  31. ACIPHEX [Concomitant]
     Active Substance: RABEPRAZOLE SODIUM
  32. METOCLOPRAMIDE. [Concomitant]
     Active Substance: METOCLOPRAMIDE
  33. ATORVASTATIN [Concomitant]
     Active Substance: ATORVASTATIN
  34. RELISTOR [Concomitant]
     Active Substance: METHYLNALTREXONE BROMIDE
  35. ONDANSETRON [Concomitant]
     Active Substance: ONDANSETRON
  36. KETOCONAZOLE. [Concomitant]
     Active Substance: KETOCONAZOLE
  37. LEVOFLOXACIN. [Concomitant]
     Active Substance: LEVOFLOXACIN
  38. CRESTOR [Concomitant]
     Active Substance: ROSUVASTATIN CALCIUM
  39. ESCITALOPRAM [Concomitant]
     Active Substance: ESCITALOPRAM OXALATE
  40. JALYN [Concomitant]
     Active Substance: DUTASTERIDE\TAMSULOSIN HYDROCHLORIDE
  41. HYDROCHLOROTHIAZIDE. [Concomitant]
     Active Substance: HYDROCHLOROTHIAZIDE
  42. BUPIVACAINE. [Concomitant]
     Active Substance: BUPIVACAINE
  43. ATRIPLA [Suspect]
     Active Substance: EFAVIRENZ\EMTRICITABINE\TENOFOVIR DISOPROXIL FUMARATE
     Indication: HEPATITIS B
     Dosage: UNK
     Route: 065
     Dates: start: 2009, end: 2017
  44. PROAIR HFA [Concomitant]
     Active Substance: ALBUTEROL SULFATE
  45. LEXAPRO [Concomitant]
     Active Substance: ESCITALOPRAM OXALATE
  46. TOPIRAMATE. [Concomitant]
     Active Substance: TOPIRAMATE
  47. CIALIS [Concomitant]
     Active Substance: TADALAFIL
  48. RIZATRIPTAN. [Concomitant]
     Active Substance: RIZATRIPTAN
  49. LEVOCETIRIZINE DIHYDROCHLORIDE. [Concomitant]
     Active Substance: LEVOCETIRIZINE DIHYDROCHLORIDE
  50. SELENIUM [Concomitant]
     Active Substance: SELENIUM
  51. THERA-M [Concomitant]
  52. DICYCLOMINE HYDROCHLORIDE. [Concomitant]
     Active Substance: DICYCLOMINE HYDROCHLORIDE
  53. PATANASE [Concomitant]
     Active Substance: OLOPATADINE HYDROCHLORIDE
  54. MIDODRINE [Concomitant]
     Active Substance: MIDODRINE
  55. DULERA [Concomitant]
     Active Substance: FORMOTEROL FUMARATE DIHYDRATE\MOMETASONE FUROATE
  56. TAMSULOSIN [Concomitant]
     Active Substance: TAMSULOSIN
  57. MIDAZOLAM. [Concomitant]
     Active Substance: MIDAZOLAM
  58. ATRIPLA [Suspect]
     Active Substance: EFAVIRENZ\EMTRICITABINE\TENOFOVIR DISOPROXIL FUMARATE
     Indication: HIV INFECTION
     Dosage: UNK
     Route: 048
     Dates: start: 2009, end: 2019
  59. FAMCICLOVIR. [Concomitant]
     Active Substance: FAMCICLOVIR
  60. ABILIFY [Concomitant]
     Active Substance: ARIPIPRAZOLE
  61. AZELATINE [Concomitant]
  62. RESTASIS [Concomitant]
     Active Substance: CYCLOSPORINE
  63. LIDOCAINE 5% EXTRA [Concomitant]
  64. CIPROFLOXACIN. [Concomitant]
     Active Substance: CIPROFLOXACIN
  65. ACYCLOVIR [ACICLOVIR] [Concomitant]
     Active Substance: ACYCLOVIR
  66. LIDODERM [Concomitant]
     Active Substance: LIDOCAINE
  67. TAMIFLU [Concomitant]
     Active Substance: OSELTAMIVIR PHOSPHATE
  68. DEXAMETHASONE. [Concomitant]
     Active Substance: DEXAMETHASONE
  69. PROPOFOL. [Concomitant]
     Active Substance: PROPOFOL
  70. VANCOMYCIN [Concomitant]
     Active Substance: VANCOMYCIN
  71. MESALAMINE. [Concomitant]
     Active Substance: MESALAMINE
  72. ASCORBIC ACID. [Concomitant]
     Active Substance: ASCORBIC ACID
  73. NASONEX [Concomitant]
     Active Substance: MOMETASONE FUROATE
  74. PHENTERMINE. [Concomitant]
     Active Substance: PHENTERMINE
  75. CANASA [Concomitant]
     Active Substance: MESALAMINE
  76. NYSTATIN. [Concomitant]
     Active Substance: NYSTATIN
  77. PATANOL [Concomitant]
     Active Substance: OLOPATADINE HYDROCHLORIDE
  78. TESTOSTERONE. [Concomitant]
     Active Substance: TESTOSTERONE
  79. VALCYCLOR [Concomitant]
  80. ENOXAPARIN [Concomitant]
     Active Substance: ENOXAPARIN
  81. SUCCINYL [Concomitant]
     Active Substance: SUCCINYLCHOLINE CHLORIDE

REACTIONS (19)
  - Osteoporosis [Unknown]
  - Ankle fracture [Unknown]
  - Bone loss [Not Recovered/Not Resolved]
  - Tooth loss [Unknown]
  - Pain [Unknown]
  - Chronic kidney disease [Unknown]
  - Cholecystectomy [Unknown]
  - Acute kidney injury [Not Recovered/Not Resolved]
  - Teeth brittle [Unknown]
  - Bone density decreased [Unknown]
  - Tooth fracture [Unknown]
  - Anxiety [Unknown]
  - Nephrolithiasis [Unknown]
  - Lower limb fracture [Unknown]
  - Economic problem [Unknown]
  - Osteopenia [Unknown]
  - Emotional distress [Unknown]
  - Anhedonia [Unknown]
  - Ligament rupture [Unknown]

NARRATIVE: CASE EVENT DATE: 201801
